FAERS Safety Report 8911953 (Version 2)
Quarter: 2012Q4

REPORT INFORMATION
  Report Type: 
  Country: CN (occurrence: CN)
  Receive Date: 20121116
  Receipt Date: 20121128
  Transmission Date: 20130627
  Serious: Yes (Other)
  Sender: FDA-Public Use
  Company Number: CN-JNJFOC-20121102186

PATIENT
  Age: 40 Year
  Sex: Male

DRUGS (2)
  1. DUROGESIC [Suspect]
     Indication: CANCER PAIN
     Route: 062
     Dates: start: 201210, end: 20121101
  2. DUROGESIC [Suspect]
     Indication: CANCER PAIN
     Route: 062
     Dates: start: 201204

REACTIONS (4)
  - Drug withdrawal syndrome [Not Recovered/Not Resolved]
  - Treatment noncompliance [Unknown]
  - Limb discomfort [Unknown]
  - Chest discomfort [Unknown]
